FAERS Safety Report 6928970-8 (Version None)
Quarter: 2010Q3

REPORT INFORMATION
  Report Type: 
  Country: None (occurrence: None)
  Receive Date: 20100812
  Receipt Date: 20100803
  Transmission Date: 20110219
  Serious: Yes (Life-Threatening, Hospitalization)
  Sender: FDA-Public Use
  Company Number: 103953

PATIENT
  Age: 72 Year
  Sex: Female
  Weight: 79 kg

DRUGS (1)
  1. ADRIAMYCIN PFS [Suspect]
     Indication: BREAST CANCER METASTATIC
     Dates: start: 20091104

REACTIONS (9)
  - BREAST CANCER METASTATIC [None]
  - CELLULITIS [None]
  - HYPOTENSION [None]
  - LYMPHADENOPATHY [None]
  - MALIGNANT NEOPLASM PROGRESSION [None]
  - MUCOSAL INFLAMMATION [None]
  - MYOSITIS [None]
  - NEUTROPENIA [None]
  - SEPSIS [None]
